FAERS Safety Report 19804183 (Version 1)
Quarter: 2021Q3

REPORT INFORMATION
  Report Type: Spontaneous
  Country: US (occurrence: US)
  Receive Date: 20210908
  Receipt Date: 20210908
  Transmission Date: 20211014
  Serious: No
  Sender: FDA-Public Use
  Company Number: US-FARMAPROD-202106-1029

PATIENT
  Sex: Female
  Weight: 81.6 kg

DRUGS (10)
  1. OXERVATE [Suspect]
     Active Substance: CENEGERMIN-BKBJ
     Indication: HYPOAESTHESIA EYE
  2. NOVOLOG [Concomitant]
     Active Substance: INSULIN ASPART
     Dosage: 100 ML VIAL
  3. PREDNISOLONE ACETATE NEPAFENAC [Concomitant]
  4. CYMBALTA [Concomitant]
     Active Substance: DULOXETINE HYDROCHLORIDE
     Dosage: DELAYED RELEASE
  5. COMBIGAN [Concomitant]
     Active Substance: BRIMONIDINE TARTRATE\TIMOLOL MALEATE
     Dosage: 0.2%?0.5% DROPS
  6. LASIX [Concomitant]
     Active Substance: FUROSEMIDE
  7. OXERVATE [Suspect]
     Active Substance: CENEGERMIN-BKBJ
     Indication: NEUROTROPHIC KERATOPATHY
     Route: 047
     Dates: start: 20210609
  8. TRESIBA [Concomitant]
     Active Substance: INSULIN DEGLUDEC
     Dosage: 100/ML VIAL
  9. AMLODIPINE BESILATE [Concomitant]
     Active Substance: AMLODIPINE BESYLATE
  10. DORZOLAMIDE TIMOLOL [Concomitant]
     Active Substance: DORZOLAMIDE

REACTIONS (6)
  - Ocular discomfort [Unknown]
  - Eye pain [Unknown]
  - Product dose omission issue [Unknown]
  - Photophobia [Unknown]
  - Lacrimation increased [Unknown]
  - Vision blurred [Unknown]
